FAERS Safety Report 14944469 (Version 2)
Quarter: 2018Q2

REPORT INFORMATION
  Report Type: Spontaneous
  Country: FR (occurrence: FR)
  Receive Date: 20180529
  Receipt Date: 20180608
  Transmission Date: 20180711
  Serious: Yes (Hospitalization, Other)
  Sender: FDA-Public Use
  Company Number: FR-SUN PHARMACEUTICAL INDUSTRIES LTD-2018RR-173846

PATIENT
  Age: 62 Year
  Sex: Female

DRUGS (15)
  1. LANTUS [Suspect]
     Active Substance: INSULIN GLARGINE
     Indication: DIABETES MELLITUS
     Dosage: IN THE EVENING
     Route: 065
  2. INSULIN [Suspect]
     Active Substance: INSULIN NOS
     Dosage: UNK
     Route: 065
  3. JANUMET [Suspect]
     Active Substance: METFORMIN HYDROCHLORIDE\SITAGLIPTIN PHOSPHATE
     Dosage: IN THE MORNING 8 AM AND IN TH EVENING 8 PM
     Route: 048
     Dates: start: 20180321
  4. INSULIN [Suspect]
     Active Substance: INSULIN NOS
     Indication: DIABETES MELLITUS
     Dosage: RAPID-ACTING INSULIN, AT MIDDAY ()
     Route: 065
  5. JANUMET [Suspect]
     Active Substance: METFORMIN HYDROCHLORIDE\SITAGLIPTIN PHOSPHATE
     Dosage: MORNING AND EVENING
     Route: 048
  6. HEMI-DAONIL [Suspect]
     Active Substance: GLYBURIDE
     Indication: DIABETES MELLITUS
     Dosage: UNK
     Route: 065
  7. HEMI-DAONIL [Suspect]
     Active Substance: GLYBURIDE
     Dosage: HALF AN HOUR BEFORE THE USUAL TIME
     Route: 065
     Dates: end: 20180320
  8. NOVORAPID [Suspect]
     Active Substance: INSULIN ASPART
     Indication: PRODUCT USED FOR UNKNOWN INDICATION
     Dosage: 3 IU, QAM
     Route: 065
     Dates: start: 20180321
  9. DIAMICRON [Suspect]
     Active Substance: GLICLAZIDE
     Indication: DIABETES MELLITUS
     Dosage: 2 TABLETS, IN THE MORNING
     Route: 065
  10. JANUMET [Suspect]
     Active Substance: METFORMIN HYDROCHLORIDE\SITAGLIPTIN PHOSPHATE
     Indication: DIABETES MELLITUS
     Dosage: IN THE MORNING
     Route: 048
  11. COKENZEN [Concomitant]
     Active Substance: CANDESARTAN CILEXETIL\HYDROCHLOROTHIAZIDE
     Indication: HYPERTENSION
     Dosage: UNK
     Route: 065
  12. TN UNSPECIFIED [Concomitant]
     Active Substance: TROLNITRATE
     Indication: DIABETES MELLITUS
     Dosage: UNK, QD AT NOON
     Route: 065
  13. METFORMINE [Suspect]
     Active Substance: METFORMIN HYDROCHLORIDE
     Indication: DIABETES MELLITUS
     Dosage: IN THE MORNING AND IN THE EVENING
     Route: 065
  14. JANUMET [Suspect]
     Active Substance: METFORMIN HYDROCHLORIDE\SITAGLIPTIN PHOSPHATE
     Dosage: TWICE DAILY
     Route: 048
  15. METFORMIN [Suspect]
     Active Substance: METFORMIN HYDROCHLORIDE
     Indication: DIABETES MELLITUS
     Dosage: 1000 MG, AT MIDDAY
     Route: 048

REACTIONS (11)
  - Hyperglycaemia [Not Recovered/Not Resolved]
  - Inappropriate schedule of drug administration [Unknown]
  - Hypertensive crisis [Unknown]
  - Heart rate increased [Unknown]
  - Pulse abnormal [Not Recovered/Not Resolved]
  - Hypoglycaemia [Not Recovered/Not Resolved]
  - Weight decreased [Unknown]
  - Palpitations [Not Recovered/Not Resolved]
  - Blood pressure decreased [Not Recovered/Not Resolved]
  - Chest pain [Unknown]
  - Gout [Not Recovered/Not Resolved]

NARRATIVE: CASE EVENT DATE: 201712
